FAERS Safety Report 12807568 (Version 3)
Quarter: 2016Q4

REPORT INFORMATION
  Report Type: Spontaneous
  Country: US (occurrence: US)
  Receive Date: 20161004
  Receipt Date: 20161219
  Transmission Date: 20170207
  Serious: Yes (Hospitalization, Other)
  Sender: FDA-Public Use
  Company Number: US-SMITH AND NEPHEW, INC-2016SMT00847

PATIENT
  Age: 80 Year
  Sex: Female
  Weight: 72.56 kg

DRUGS (5)
  1. REGRANEX [Suspect]
     Active Substance: BECAPLERMIN
     Indication: ULCER
     Dosage: UNK, 1X/DAY
     Route: 061
     Dates: start: 201607
  2. LISINOPRIL. [Concomitant]
     Active Substance: LISINOPRIL
  3. LASIX [Concomitant]
     Active Substance: FUROSEMIDE
  4. ELIQUIS [Concomitant]
     Active Substance: APIXABAN
  5. ASPIRIN. [Concomitant]
     Active Substance: ASPIRIN

REACTIONS (12)
  - Wound infection staphylococcal [Unknown]
  - Cellulitis [Unknown]
  - Breast disorder [Unknown]
  - Hyperlipidaemia [Unknown]
  - Gangrene [Not Recovered/Not Resolved]
  - Osteonecrosis [Unknown]
  - Cardiomyopathy [Unknown]
  - Cardiac failure acute [Unknown]
  - Iron deficiency anaemia [Unknown]
  - Osteomyelitis acute [Unknown]
  - Blister [Unknown]
  - Pain in extremity [Unknown]

NARRATIVE: CASE EVENT DATE: 2016
